FAERS Safety Report 21694793 (Version 1)
Quarter: 2022Q4

REPORT INFORMATION
  Report Type: Spontaneous
  Country: US (occurrence: None)
  Receive Date: 20221206
  Receipt Date: 20221206
  Transmission Date: 20230112
  Serious: No
  Sender: FDA-Public Use
  Company Number: None

PATIENT
  Age: 82 Year
  Sex: Female

DRUGS (1)
  1. ENBREL [Suspect]
     Active Substance: ETANERCEPT
     Indication: Rheumatoid arthritis
     Dosage: INJECT 50MG  SUBCUTANEOUSLY  ONCE WEEKLY  AS DIRECTED
     Route: 058
     Dates: start: 202002

REACTIONS (3)
  - Ear infection [None]
  - Pharyngitis [None]
  - Nasal disorder [None]
